FAERS Safety Report 9916128 (Version 2)
Quarter: 2014Q2

REPORT INFORMATION
  Report Type: Spontaneous
  Country: IT (occurrence: IT)
  Receive Date: 20140221
  Receipt Date: 20140421
  Transmission Date: 20141212
  Serious: Yes (Other)
  Sender: FDA-Public Use
  Company Number: IT-MYLANLABS-2014S1002917

PATIENT
  Age: 57 Year
  Sex: Female

DRUGS (6)
  1. PACLITAXEL [Suspect]
     Indication: OVARIAN GERM CELL CANCER STAGE IV
     Route: 042
     Dates: start: 20140129, end: 20140129
  2. DECADRON [Concomitant]
     Indication: PREMEDICATION
     Dosage: 8MG/2ML INJECTION SOLUTION
     Route: 042
     Dates: start: 20140129, end: 20140129
  3. ZANTAC [Concomitant]
     Indication: PREMEDICATION
     Dosage: 50MG/5ML INJECTION SOLUTION
     Route: 042
     Dates: start: 20140129, end: 20140129
  4. TRIMETON /00072502/ [Concomitant]
     Indication: PREMEDICATION
     Dosage: 10MG/1ML INJECTION SOLUTION
     Route: 042
     Dates: start: 20140129, end: 20140129
  5. ONDANSETRON KABI [Concomitant]
     Indication: PREMEDICATION
     Dosage: 2MG/ML INJECTION SOLUTION
     Route: 042
     Dates: start: 20140129, end: 20140129
  6. TARGIN [Concomitant]
     Indication: PAIN
     Dosage: 10MG/5MG MODIFIED RELEASED TABLETS
     Route: 048

REACTIONS (3)
  - Dyspnoea [Recovered/Resolved]
  - Hypertension [Recovered/Resolved]
  - Hot flush [Recovered/Resolved]
